FAERS Safety Report 9536815 (Version 1)
Quarter: 2013Q3

REPORT INFORMATION
  Report Type: Spontaneous
  Country: US (occurrence: US)
  Receive Date: 20130919
  Receipt Date: 20130919
  Transmission Date: 20140515
  Serious: No
  Sender: FDA-Public Use
  Company Number: US-B.I. PHARMACEUTICALS,INC./RIDGEFIELD-2013-BI-28440BP

PATIENT
  Age: 65 Year
  Sex: Male
  Weight: 109 kg

DRUGS (7)
  1. SPIRIVA [Suspect]
     Indication: CHRONIC OBSTRUCTIVE PULMONARY DISEASE
     Dosage: 18 MCG
     Route: 055
     Dates: start: 20130910, end: 20130911
  2. LOPRESSOR [Concomitant]
     Indication: HYPERTENSION
     Dosage: 100 MG
     Route: 048
     Dates: start: 201303
  3. SIMVASTATIN [Concomitant]
     Indication: BLOOD CHOLESTEROL INCREASED
     Dosage: 20 MG
     Route: 048
     Dates: start: 201303
  4. ASPIRIN [Concomitant]
     Indication: MYOCARDIAL INFARCTION
     Dosage: 81 MG
     Route: 048
     Dates: start: 201303
  5. XARELTO [Concomitant]
     Indication: MYOCARDIAL INFARCTION
     Dosage: 20 MG
     Route: 048
     Dates: start: 201303
  6. PREDNISONE [Concomitant]
     Indication: OEDEMA PERIPHERAL
     Dosage: 10 MG
     Route: 048
     Dates: start: 201304
  7. LOSARTAN [Concomitant]
     Indication: HYPERTENSION
     Dosage: DOSE STRENGTH: 100 MG / 12.5 MG; DAILY DOSE: 100 MG / 12.5 MG
     Route: 048
     Dates: start: 201303

REACTIONS (5)
  - Chest pain [Recovered/Resolved]
  - Hypoaesthesia [Not Recovered/Not Resolved]
  - Nausea [Recovered/Resolved]
  - Diarrhoea [Recovered/Resolved]
  - Dry mouth [Recovered/Resolved]
